FAERS Safety Report 8163557-3 (Version None)
Quarter: 2012Q1

REPORT INFORMATION
  Report Type: 
  Country: None (occurrence: None)
  Receive Date: 20120224
  Receipt Date: 20120215
  Transmission Date: 20120608
  Serious: Yes (Other)
  Sender: FDA-Public Use
  Company Number: US-JNJFOC-20120208076

PATIENT
  Sex: Male
  Weight: 72.58 kg

DRUGS (2)
  1. TOPAMAX [Suspect]
     Indication: CONVULSION
     Route: 048
     Dates: start: 20070101, end: 20100101
  2. SYNTHROID [Concomitant]
     Indication: THYROID DISORDER
     Route: 048
     Dates: start: 20010101

REACTIONS (3)
  - GENERAL PHYSICAL HEALTH DETERIORATION [None]
  - ABNORMAL LOSS OF WEIGHT [None]
  - MENTAL IMPAIRMENT [None]
